FAERS Safety Report 4277988-5 (Version None)
Quarter: 2004Q1

REPORT INFORMATION
  Report Type: 
  Country: None (occurrence: None)
  Receive Date: 20040121
  Receipt Date: 20031002
  Transmission Date: 20041129
  Serious: Yes (Other)
  Sender: FDA-Public Use
  Company Number: 2003-02-0484

PATIENT
  Age: 20 Year
  Sex: Male

DRUGS (1)
  1. SUBUTEX [Suspect]
     Indication: DRUG DEPENDENCE
     Dosage: 16 MG QD; SUBLINGUAL
     Route: 060

REACTIONS (3)
  - ARRHYTHMIA [None]
  - CARDIOTOXICITY [None]
  - TACHYCARDIA [None]
